FAERS Safety Report 20439586 (Version 1)
Quarter: 2022Q1

REPORT INFORMATION
  Report Type: Spontaneous
  Country: US (occurrence: None)
  Receive Date: 20220205
  Receipt Date: 20220205
  Transmission Date: 20220423
  Serious: Yes (Hospitalization)
  Sender: FDA-Public Use
  Company Number: None

PATIENT
  Sex: Female
  Weight: 85.7 kg

DRUGS (1)
  1. ASPIRIN [Suspect]
     Active Substance: ASPIRIN
     Dates: end: 20211214

REACTIONS (3)
  - Coronary artery occlusion [None]
  - Coronary arterial stent insertion [None]
  - Exercise electrocardiogram abnormal [None]

NARRATIVE: CASE EVENT DATE: 20220126
